FAERS Safety Report 11874382 (Version 1)
Quarter: 2015Q4

REPORT INFORMATION
  Report Type: Spontaneous
  Country: JP (occurrence: JP)
  Receive Date: 20151229
  Receipt Date: 20151229
  Transmission Date: 20160305
  Serious: Yes (Death, Disabling, Other)
  Sender: FDA-Public Use
  Company Number: JP-ROCHE-1685048

PATIENT
  Age: 65 Year
  Sex: Male
  Weight: 55 kg

DRUGS (3)
  1. AVASTIN [Suspect]
     Active Substance: BEVACIZUMAB
     Indication: LUNG ADENOCARCINOMA
     Dosage: TREATMENT LINE: 1?COMPLETED TREATMENT CYCLE NUMBER: 2
     Route: 041
     Dates: start: 20141218, end: 20150108
  2. CARBOPLATIN. [Suspect]
     Active Substance: CARBOPLATIN
     Indication: LUNG ADENOCARCINOMA
     Dosage: COMPLETED TREATMENT CYCLE NUMBER: 2
     Route: 041
     Dates: start: 20141218, end: 20150108
  3. ALIMTA [Suspect]
     Active Substance: PEMETREXED DISODIUM
     Indication: LUNG ADENOCARCINOMA
     Dosage: DOSE INTERVAL UNCERTAINTY?COMPLETED TREATMENT CYCLE NUMBER: 2
     Route: 041
     Dates: start: 20141218, end: 20150108

REACTIONS (6)
  - Gastrointestinal haemorrhage [Unknown]
  - Cytopenia [Unknown]
  - Intestinal perforation [Recovered/Resolved with Sequelae]
  - Sepsis [Unknown]
  - Lung adenocarcinoma [Fatal]
  - Disseminated intravascular coagulation [Unknown]

NARRATIVE: CASE EVENT DATE: 20150113
